FAERS Safety Report 5721213-2 (Version None)
Quarter: 2008Q2

REPORT INFORMATION
  Report Type: 
  Country: None (occurrence: None)
  Receive Date: 20080424
  Receipt Date: 20080414
  Transmission Date: 20081010
  Serious: Yes (Death)
  Sender: FDA-Public Use
  Company Number: S07-CAN-02626-01

PATIENT
  Age: 67 Year
  Sex: Female

DRUGS (6)
  1. TIAZAC [Suspect]
  2. METOPROLOL TARTRATE [Suspect]
  3. WARFARIN SODIUM [Concomitant]
  4. COZAAR [Concomitant]
  5. CLODRONATE [Concomitant]
  6. DIURETIC (NOS) [Concomitant]

REACTIONS (6)
  - CARDIAC DISORDER [None]
  - CARDIOGENIC SHOCK [None]
  - DIZZINESS [None]
  - DRUG INTERACTION [None]
  - HEART RATE DECREASED [None]
  - NAUSEA [None]
